FAERS Safety Report 9915087 (Version 3)
Quarter: 2014Q2

REPORT INFORMATION
  Report Type: Spontaneous
  Country: AT (occurrence: AT)
  Receive Date: 20140220
  Receipt Date: 20140415
  Transmission Date: 20141212
  Serious: Yes (Other)
  Sender: FDA-Public Use
  Company Number: AT-ASTRAZENECA-2013SE41094

PATIENT
  Age: 65 Year
  Sex: Female

DRUGS (35)
  1. ACEMIN [Suspect]
     Indication: HYPERTENSION
     Route: 048
     Dates: start: 20130324, end: 20130429
  2. SEROQUEL [Suspect]
     Route: 048
     Dates: start: 20130307, end: 20130310
  3. SEROQUEL [Suspect]
     Route: 048
     Dates: start: 20130311, end: 20130313
  4. SEROQUEL [Suspect]
     Route: 048
     Dates: start: 20130314, end: 20130515
  5. SEROQUEL [Suspect]
     Route: 048
     Dates: start: 20130516
  6. EFECTIN ER [Suspect]
     Route: 048
     Dates: start: 201210, end: 20130311
  7. EFECTIN ER [Suspect]
     Route: 048
     Dates: start: 20130312, end: 20130423
  8. EFECTIN ER [Suspect]
     Route: 048
     Dates: start: 20130424, end: 20130506
  9. EFECTIN ER [Suspect]
     Route: 048
     Dates: start: 20130507, end: 20130510
  10. PLAVIX [Suspect]
     Indication: PLATELET AGGREGATION INHIBITION
     Route: 048
     Dates: start: 20130325
  11. LAMICTAL [Interacting]
     Route: 048
     Dates: start: 201210, end: 20130417
  12. LAMICTAL [Interacting]
     Route: 048
     Dates: start: 20130418, end: 20130422
  13. PANTOLOC [Suspect]
     Indication: GASTROINTESTINAL DISORDER
     Route: 048
     Dates: start: 2012, end: 20130329
  14. PANTOLOC [Suspect]
     Indication: GASTROINTESTINAL DISORDER
     Route: 048
     Dates: start: 20130330
  15. NOCUTIL [Suspect]
     Indication: HYPOTHALAMO-PITUITARY DISORDER
     Route: 048
     Dates: start: 2012
  16. FOLSAN [Suspect]
     Indication: ANAEMIA PROPHYLAXIS
     Route: 048
     Dates: start: 2012
  17. DEPAKINE CR [Interacting]
     Route: 048
     Dates: start: 20130404, end: 20130407
  18. DEPAKINE CR [Interacting]
     Route: 048
     Dates: start: 20130408, end: 20130410
  19. DEPAKINE CR [Interacting]
     Route: 048
     Dates: start: 20130411, end: 20130425
  20. DEPAKINE CR [Interacting]
     Route: 048
     Dates: start: 20130426, end: 20130512
  21. DEPAKINE CR [Interacting]
     Route: 048
     Dates: start: 20130513
  22. ZOLDEM [Concomitant]
     Route: 048
     Dates: start: 20130314, end: 20130513
  23. SORTIS [Concomitant]
     Indication: VEIN DISORDER
     Route: 048
     Dates: start: 2012, end: 20130321
  24. SORTIS [Concomitant]
     Indication: LIPIDS INCREASED
     Route: 048
     Dates: start: 2012, end: 20130321
  25. SORTIS [Concomitant]
     Indication: VEIN DISORDER
     Route: 048
     Dates: start: 20130322, end: 20130324
  26. SORTIS [Concomitant]
     Indication: LIPIDS INCREASED
     Route: 048
     Dates: start: 20130322, end: 20130324
  27. SORTIS [Concomitant]
     Indication: VEIN DISORDER
     Route: 048
     Dates: start: 20130325
  28. SORTIS [Concomitant]
     Indication: LIPIDS INCREASED
     Route: 048
     Dates: start: 20130325
  29. NEUROBION FORTE [Concomitant]
     Indication: NEUROPATHY PERIPHERAL
     Dates: start: 2012
  30. MAGNOSOLV BTBL. [Concomitant]
     Indication: MINERAL SUPPLEMENTATION
     Dates: start: 2012
  31. NITROLINGUAL RED [Concomitant]
     Indication: ANGINA PECTORIS
     Dates: start: 2012
  32. DALACIN [Concomitant]
     Dates: start: 20130418, end: 20130424
  33. OVESTIN [Concomitant]
     Dates: start: 20130415
  34. TANTUM ROSA [Concomitant]
     Route: 067
     Dates: start: 20130415
  35. ANTIBIOPHILUS [Concomitant]
     Dates: start: 20130418, end: 20130424

REACTIONS (5)
  - Ageusia [Recovering/Resolving]
  - Dysgeusia [Recovering/Resolving]
  - Nausea [Unknown]
  - Dry mouth [Recovering/Resolving]
  - Drug interaction [Unknown]
